FAERS Safety Report 18439535 (Version 1)
Quarter: 2020Q4

REPORT INFORMATION
  Report Type: Spontaneous
  Country: CO (occurrence: CO)
  Receive Date: 20201029
  Receipt Date: 20201029
  Transmission Date: 20210114
  Serious: Yes (Other)
  Sender: FDA-Public Use
  Company Number: CO-ASTRAZENECA-2020SF39137

PATIENT
  Age: 61 Year
  Sex: Female

DRUGS (2)
  1. RIVOTRIL [Concomitant]
     Active Substance: CLONAZEPAM
     Dosage: UNKNOWN
     Route: 065
  2. SEROQUEL [Suspect]
     Active Substance: QUETIAPINE FUMARATE
     Indication: INSOMNIA
     Dosage: 25.0MG UNKNOWN
     Route: 048

REACTIONS (2)
  - Off label use [Unknown]
  - Visual impairment [Not Recovered/Not Resolved]
